FAERS Safety Report 11915164 (Version 3)
Quarter: 2016Q1

REPORT INFORMATION
  Report Type: Report from Study
  Country: US (occurrence: US)
  Receive Date: 20160114
  Receipt Date: 20160311
  Transmission Date: 20160526
  Serious: Yes (Hospitalization, Other)
  Sender: FDA-Public Use
  Company Number: US-AMGEN-USASL2016003276

PATIENT
  Age: 68 Year
  Sex: Female

DRUGS (8)
  1. PREDNISONE. [Suspect]
     Active Substance: PREDNISONE
     Indication: PRODUCT USED FOR UNKNOWN INDICATION
     Dosage: UNK
     Route: 065
  2. ENBREL [Suspect]
     Active Substance: ETANERCEPT
     Dosage: UNK
     Route: 065
  3. B COMPLEX                          /00322001/ [Concomitant]
  4. LOSARTAN. [Concomitant]
     Active Substance: LOSARTAN
     Dosage: UNK
  5. LORATADINE. [Concomitant]
     Active Substance: LORATADINE
     Dosage: UNK
  6. GLIPIZIDE. [Concomitant]
     Active Substance: GLIPIZIDE
     Dosage: UNK
  7. JANUMET [Concomitant]
     Active Substance: METFORMIN HYDROCHLORIDE\SITAGLIPTIN PHOSPHATE
     Dosage: UNK
  8. ENBREL [Suspect]
     Active Substance: ETANERCEPT
     Indication: RHEUMATOID ARTHRITIS
     Dosage: 50 MG, QWK
     Route: 058
     Dates: start: 2010

REACTIONS (12)
  - Feeling hot [Unknown]
  - Post procedural complication [Recovered/Resolved]
  - Pain [Unknown]
  - Feeling abnormal [Unknown]
  - Hip arthroplasty [Recovered/Resolved]
  - Femur fracture [Unknown]
  - Hypophagia [Unknown]
  - Hunger [Unknown]
  - Mobility decreased [Unknown]
  - Inflammation [Unknown]
  - Arthritis [Unknown]
  - Limb discomfort [Unknown]

NARRATIVE: CASE EVENT DATE: 201508
